FAERS Safety Report 8996497 (Version 1)
Quarter: 2013Q1

REPORT INFORMATION
  Report Type: Spontaneous
  Country: US (occurrence: US)
  Receive Date: 20130104
  Receipt Date: 20130104
  Transmission Date: 20140127
  Serious: Yes (Other)
  Sender: FDA-Public Use
  Company Number: US-AMGEN-USASP2012078722

PATIENT
  Age: 63 Year
  Sex: Female

DRUGS (9)
  1. PROLIA [Suspect]
     Indication: OSTEOPOROSIS POSTMENOPAUSAL
     Dosage: 60 MG, Q6MO
     Dates: start: 20121101
  2. PROLIA [Suspect]
  3. EFFEXOR [Concomitant]
     Indication: ANXIETY
     Dosage: UNK
  4. ESTROGEL [Concomitant]
     Dosage: UNK
  5. PROMETRIUM                         /00110701/ [Concomitant]
     Dosage: UNK
  6. ZOSTAVAX [Concomitant]
  7. MIRALAX                            /00754501/ [Concomitant]
  8. CYMBALTA [Concomitant]
     Indication: ANXIETY
     Dosage: UNK
     Dates: end: 20121103
  9. TESTOSTERONE [Concomitant]
     Route: 060

REACTIONS (7)
  - Toxic neuropathy [Unknown]
  - Inflammation [Unknown]
  - Impaired healing [Recovering/Resolving]
  - Nausea [Unknown]
  - Local swelling [Recovered/Resolved]
  - Pruritus [Recovered/Resolved]
  - Abdominal pain upper [Not Recovered/Not Resolved]
